FAERS Safety Report 25365836 (Version 1)
Quarter: 2025Q2

REPORT INFORMATION
  Report Type: Spontaneous
  Country: GB (occurrence: GB)
  Receive Date: 20250528
  Receipt Date: 20250528
  Transmission Date: 20250716
  Serious: Yes (Other)
  Sender: NOVO NORDISK
  Company Number: None

PATIENT
  Age: 55 Year
  Sex: Female
  Weight: 115 kg

DRUGS (4)
  1. WEGOVY [Suspect]
     Active Substance: SEMAGLUTIDE
     Indication: Obesity
     Dates: start: 20241107
  2. WEGOVY [Suspect]
     Active Substance: SEMAGLUTIDE
     Dates: end: 20250420
  3. WEGOVY [Suspect]
     Active Substance: SEMAGLUTIDE
  4. WEGOVY [Suspect]
     Active Substance: SEMAGLUTIDE

REACTIONS (2)
  - Myalgia [Recovered/Resolved]
  - Weight loss poor [Unknown]

NARRATIVE: CASE EVENT DATE: 20250101
